FAERS Safety Report 13402499 (Version 2)
Quarter: 2017Q2

REPORT INFORMATION
  Report Type: Spontaneous
  Country: IT (occurrence: IT)
  Receive Date: 20170404
  Receipt Date: 20170410
  Transmission Date: 20170830
  Serious: Yes (Life-Threatening, Other)
  Sender: FDA-Public Use
  Company Number: IT-PFIZER INC-2017140250

PATIENT
  Age: 66 Year
  Sex: Female

DRUGS (6)
  1. RIFAMPICIN [Interacting]
     Active Substance: RIFAMPIN
     Dosage: 600 MG, 2X/DAY
  2. MINOCYCLINE [Interacting]
     Active Substance: MINOCYCLINE\MINOCYCLINE HYDROCHLORIDE
     Dosage: 100 MG, 2X/DAY
  3. METFORMIN [Concomitant]
     Active Substance: METFORMIN HYDROCHLORIDE
     Dosage: 850 THREE TIMES DAILY
  4. AMLODIPINE BESILATE [Suspect]
     Active Substance: AMLODIPINE BESYLATE
     Dosage: 10 MG, UNK
  5. BISOPROLOL FUMARATE. [Interacting]
     Active Substance: BISOPROLOL FUMARATE
     Dosage: 5 MG, UNK
  6. CLINDAMYCIN PHOSPHATE. [Interacting]
     Active Substance: CLINDAMYCIN PHOSPHATE
     Dosage: 600 MG, 2X/DAY

REACTIONS (3)
  - Drug interaction [Recovering/Resolving]
  - Toxicity to various agents [Recovering/Resolving]
  - Atrioventricular block complete [Recovering/Resolving]
